FAERS Safety Report 8691393 (Version 2)
Quarter: 2012Q4

REPORT INFORMATION
  Report Type: Report from Study
  Country: US (occurrence: US)
  Receive Date: 20120730
  Receipt Date: 20120831
  Transmission Date: 20130627
  Serious: Yes (Death, Hospitalization)
  Sender: FDA-Public Use
  Company Number: US-ASTELLAS-2012US006392

PATIENT
  Age: 68 None
  Sex: Female

DRUGS (29)
  1. ERLOTINIB TABLET [Suspect]
     Indication: PANCREATIC CARCINOMA
     Dosage: 100 mg, UID/QD
     Route: 048
     Dates: start: 20120215
  2. PROCHLORPERAZINE MALEATE [Concomitant]
     Indication: PRODUCT USED FOR UNKNOWN INDICATION
     Dosage: 1 DF, Q6 hours
     Route: 048
     Dates: start: 20120202
  3. ONDANSETRON HCL [Concomitant]
     Indication: NAUSEA
     Dosage: 1 DF, prn
     Route: 048
     Dates: start: 20120202
  4. ZOLPIDEM [Concomitant]
     Indication: PRODUCT USED FOR UNKNOWN INDICATION
     Dosage: 5 mg, UID/QD before sleep
     Route: 048
     Dates: start: 20120202
  5. OXYCODONE [Concomitant]
     Indication: PAIN
     Dosage: 5 mg, 1-2 tablets prn
     Route: 048
     Dates: start: 20120220
  6. OXYCODONE [Concomitant]
     Indication: PRODUCT USED FOR UNKNOWN INDICATION
     Dosage: 1 DF, Other, q4hrs
     Route: 048
     Dates: start: 20120312
  7. CIPROFLOXACIN [Concomitant]
     Indication: PRODUCT USED FOR UNKNOWN INDICATION
     Dosage: 1 DF, bid
     Route: 048
     Dates: start: 20120222
  8. NITROFURANTOIN MONOHYDRATE/MACROCRYSTALS [Concomitant]
     Indication: PRODUCT USED FOR UNKNOWN INDICATION
     Dosage: 1 DF, bid
     Route: 048
     Dates: start: 20120227
  9. FENTANYL [Concomitant]
     Indication: PRODUCT USED FOR UNKNOWN INDICATION
     Dosage: 12 ug, Unknown/D
     Route: 062
     Dates: start: 20120202
  10. FENTANYL [Concomitant]
     Dosage: 25 ug, Q48H
     Route: 062
     Dates: start: 20120213
  11. FENTANYL [Concomitant]
     Dosage: 1 DF, qod
     Route: 062
     Dates: start: 20120417
  12. FENTANYL [Concomitant]
     Dosage: 1 DF, Q3D
     Route: 062
     Dates: start: 20120305
  13. FUROSEMIDE [Concomitant]
     Indication: PRODUCT USED FOR UNKNOWN INDICATION
     Dosage: 1 DF, UID/QD
     Route: 048
     Dates: start: 20120312
  14. DRONABINOL [Concomitant]
     Indication: PRODUCT USED FOR UNKNOWN INDICATION
     Dosage: 1 DF, bid
     Route: 048
     Dates: start: 20120326
  15. DIPHENOXYLATE HCL AND ATROPINE SULFATE [Concomitant]
     Indication: PRODUCT USED FOR UNKNOWN INDICATION
     Dosage: 1 DF, Q6 hours
     Route: 048
     Dates: start: 20120326
  16. LORAZEPAM [Concomitant]
     Indication: PRODUCT USED FOR UNKNOWN INDICATION
     Dosage: 1-2 tabs Q4H, PRN
     Route: 048
     Dates: start: 20120329
  17. NYSTATIN -HYDROCORTISONE/ DIPHENHYDRAMINE [Concomitant]
     Indication: ORAL PAIN
     Dosage: 20 ml, prn, qid
     Route: 048
     Dates: start: 20120424
  18. FLUCONAZOLE [Concomitant]
     Indication: PRODUCT USED FOR UNKNOWN INDICATION
     Dosage: 1 DF, UID/QD
     Route: 048
     Dates: start: 20120430
  19. NYSTATIN [Concomitant]
     Indication: PRODUCT USED FOR UNKNOWN INDICATION
     Dosage: 1 DF, tid
     Route: 061
     Dates: start: 20120430
  20. FLUTICASONE W/SALMETEROL [Concomitant]
     Indication: PRODUCT USED FOR UNKNOWN INDICATION
     Dosage: 1 puff BID
     Route: 065
     Dates: start: 20120202
  21. ALBUTEROL                          /00139501/ [Concomitant]
     Indication: PRODUCT USED FOR UNKNOWN INDICATION
     Dosage: 90 ug, 2 puffs Q4H, PRN
     Route: 065
     Dates: start: 20120202
  22. AMITRIPTYLINE [Concomitant]
     Indication: PRODUCT USED FOR UNKNOWN INDICATION
     Dosage: 50 mg, Unknown/D
     Route: 048
     Dates: start: 20120202
  23. DOCUSATE SODIUM [Concomitant]
     Indication: PRODUCT USED FOR UNKNOWN INDICATION
     Dosage: 100 mg, Unknown/D
     Route: 048
     Dates: start: 20120202
  24. LOSARTAN HYDROCHLOROTHIAZIDE TEVA [Concomitant]
     Indication: PRODUCT USED FOR UNKNOWN INDICATION
     Dosage: 50/12.5 DF, UID/QD
     Route: 048
     Dates: start: 20120202
  25. MELATONIN [Concomitant]
     Indication: PRODUCT USED FOR UNKNOWN INDICATION
     Dosage: UNK
     Route: 048
     Dates: start: 20120202
  26. METFORMIN [Concomitant]
     Indication: PRODUCT USED FOR UNKNOWN INDICATION
     Dosage: 500 mg, bid
     Route: 048
     Dates: start: 20120202
  27. MONTELUKAST [Concomitant]
     Indication: PRODUCT USED FOR UNKNOWN INDICATION
     Dosage: 10 mg, UID/QD
     Route: 048
     Dates: start: 20120202
  28. TIOTROPIUM BROMIDE [Concomitant]
     Indication: PRODUCT USED FOR UNKNOWN INDICATION
     Dosage: 18 ug, Unknown/D
     Route: 065
     Dates: start: 20120202
  29. MAGIC MOUTHWASH [Concomitant]
     Indication: PRODUCT USED FOR UNKNOWN INDICATION
     Dosage: 2 teaspoons/morning
     Route: 065
     Dates: start: 20120220

REACTIONS (2)
  - Pancreatic carcinoma metastatic [Fatal]
  - Rash [Unknown]
